FAERS Safety Report 15452605 (Version 1)
Quarter: 2018Q4

REPORT INFORMATION
  Report Type: Not Available
  Country: GB (occurrence: GB)
  Receive Date: 20181001
  Receipt Date: 20181001
  Transmission Date: 20190204
  Serious: Yes (Hospitalization)
  Sender: FDA-Public Use
  Company Number: GB-SYNTHON BV-NL01PV18_47490

PATIENT
  Age: 57 Year
  Sex: Male
  Weight: 78.1 kg

DRUGS (1)
  1. DIFFUNDOX XL [Suspect]
     Active Substance: TAMSULOSIN HYDROCHLORIDE
     Dosage: 400 ?G, UNK
     Route: 048
     Dates: start: 20180614, end: 20180620

REACTIONS (1)
  - Painful erection [Not Recovered/Not Resolved]

NARRATIVE: CASE EVENT DATE: 20180614
